FAERS Safety Report 7509651-9 (Version None)
Quarter: 2011Q2

REPORT INFORMATION
  Report Type: 
  Country: None (occurrence: None)
  Receive Date: 20110527
  Receipt Date: 20110516
  Transmission Date: 20111010
  Serious: Yes (Death)
  Sender: FDA-Public Use
  Company Number: GB-JNJFOC-20101205083

PATIENT
  Sex: Female
  Weight: 81 kg

DRUGS (1)
  1. REMICADE [Suspect]
     Indication: RHEUMATOID ARTHRITIS
     Route: 042
     Dates: start: 20041015

REACTIONS (3)
  - METASTASES TO CENTRAL NERVOUS SYSTEM [None]
  - SMALL CELL LUNG CANCER STAGE UNSPECIFIED [None]
  - METASTASES TO LIVER [None]
